FAERS Safety Report 6425630-7 (Version None)
Quarter: 2009Q4

REPORT INFORMATION
  Report Type: 
  Country: None (occurrence: None)
  Receive Date: 20091103
  Receipt Date: 20091027
  Transmission Date: 20100525
  Serious: Yes (Hospitalization)
  Sender: FDA-Public Use
  Company Number: US-WYE-H11864709

PATIENT
  Age: 68 Year
  Sex: Female

DRUGS (2)
  1. TORISEL [Suspect]
     Indication: BREAST CANCER METASTATIC
     Dosage: UNKNOWN
     Route: 042
     Dates: start: 20090801, end: 20091009
  2. HYDROXYCHLOROQUINE SULFATE [Concomitant]
     Indication: NEOPLASM MALIGNANT
     Dosage: NOT PROVIDED
     Dates: start: 20090101

REACTIONS (2)
  - ASCITES [None]
  - FAILURE TO THRIVE [None]
